FAERS Safety Report 9335105 (Version 3)
Quarter: 2013Q4

REPORT INFORMATION
  Report Type: Spontaneous
  Country: US (occurrence: US)
  Receive Date: 20130606
  Receipt Date: 20131205
  Transmission Date: 20140711
  Serious: No
  Sender: FDA-Public Use
  Company Number: US-PFIZER INC-2013170696

PATIENT
  Age: 53 Year
  Sex: Female
  Weight: 54.4 kg

DRUGS (2)
  1. NICOTROL NASAL SPRAY [Suspect]
     Indication: SMOKING CESSATION THERAPY
     Dosage: UNK
     Route: 045
     Dates: start: 2009
  2. NICOTROL INHALER [Suspect]
     Dosage: UNK

REACTIONS (6)
  - Drug withdrawal syndrome [Recovered/Resolved]
  - Cold sweat [Recovered/Resolved]
  - Nausea [Recovered/Resolved]
  - Diarrhoea [Recovered/Resolved]
  - Vomiting [Recovered/Resolved]
  - Nicotine dependence [Unknown]
